FAERS Safety Report 7215057-2 (Version None)
Quarter: 2011Q1

REPORT INFORMATION
  Report Type: 
  Country: None (occurrence: None)
  Receive Date: 20110107
  Receipt Date: 20100715
  Transmission Date: 20110831
  Serious: No
  Sender: FDA-Public Use
  Company Number: A0873128A

PATIENT
  Sex: Male

DRUGS (1)
  1. LOVAZA [Suspect]

REACTIONS (2)
  - THERAPEUTIC RESPONSE UNEXPECTED [None]
  - ERECTION INCREASED [None]
